FAERS Safety Report 9041046 (Version 1)
Quarter: 2013Q1

REPORT INFORMATION
  Report Type: Spontaneous
  Country: US (occurrence: None)
  Receive Date: 20130124
  Receipt Date: 20130124
  Transmission Date: 20140127
  Serious: Yes (Other)
  Sender: FDA-Public Use
  Company Number: None

PATIENT
  Age: 74 Year
  Sex: Male
  Weight: 82.1 kg

DRUGS (1)
  1. CIPROFLOXACIN HCL [Suspect]
     Indication: PROSTATITIS
     Dosage: 500MG. TAB  2X@DY FOR 21DY  ORAL
     Route: 048
     Dates: start: 20120830, end: 20120909

REACTIONS (8)
  - Arthralgia [None]
  - Arthralgia [None]
  - Pain in extremity [None]
  - Rash [None]
  - Urticaria [None]
  - Pruritus [None]
  - Rash pustular [None]
  - Fatigue [None]
